FAERS Safety Report 7626710-0 (Version None)
Quarter: 2011Q3

REPORT INFORMATION
  Report Type: 
  Country: None (occurrence: None)
  Receive Date: 20110714
  Receipt Date: 20110708
  Transmission Date: 20111222
  Serious: Yes (Hospitalization)
  Sender: FDA-Public Use
  Company Number: CIP11001632

PATIENT
  Age: 53 Year
  Sex: Female

DRUGS (10)
  1. KEPPRA [Concomitant]
  2. LEVOXYL [Concomitant]
  3. ERGOCALCIFEROL [Concomitant]
  4. CLONAZEPAM [Concomitant]
  5. ATACAND [Concomitant]
  6. PRANDIN	 /00882701/ (DEFLAZACORT) [Concomitant]
  7. ATELVIA [Suspect]
     Indication: OSTEOPOROSIS
     Dosage: 35 MG ONCE WEEKLY, TOOK FIRST DOSE, ORAL
     Route: 048
     Dates: start: 20110706
  8. JANUVIA (SITAGLIPTIN PHOSPHATE) [Concomitant]
  9. MAXAIR [Concomitant]
  10. HYDROCORTONE [Concomitant]

REACTIONS (7)
  - TRISMUS [None]
  - BLOOD ALKALINE PHOSPHATASE INCREASED [None]
  - CHILLS [None]
  - TREMOR [None]
  - PARALYSIS [None]
  - BLOOD PRESSURE INCREASED [None]
  - PYREXIA [None]
